FAERS Safety Report 23092193 (Version 2)
Quarter: 2023Q4

REPORT INFORMATION
  Report Type: Spontaneous
  Country: US (occurrence: US)
  Receive Date: 20231021
  Receipt Date: 20231024
  Transmission Date: 20240109
  Serious: Yes (Hospitalization, Other)
  Sender: FDA-Public Use
  Company Number: US-PROCTER+GAMBLE-PH23009391

PATIENT
  Age: 61 Year
  Sex: Male

DRUGS (1)
  1. VICKS NYQUIL [Suspect]
     Active Substance: ACETAMINOPHEN\DEXTROMETHORPHAN HYDROBROMIDE\DOXYLAMINE SUCCINATE
     Dosage: BOILING CHICKEN IN NYQUIL AND INHALING THE FUMES
     Route: 055

REACTIONS (17)
  - Acute respiratory distress syndrome [Recovered/Resolved]
  - Chronic obstructive pulmonary disease [Recovered/Resolved]
  - Condition aggravated [Recovered/Resolved]
  - Pneumonia [Recovered/Resolved]
  - Hypoxia [Recovered/Resolved]
  - Oxygen saturation decreased [Recovered/Resolved]
  - Staphylococcal infection [Recovered/Resolved]
  - Lung opacity [Recovered/Resolved]
  - Atelectasis [Recovered/Resolved]
  - Dyspnoea [Recovered/Resolved]
  - Leukocytosis [Recovered/Resolved]
  - Pleural effusion [Recovered/Resolved]
  - Brain natriuretic peptide increased [Recovered/Resolved]
  - PaO2/FiO2 ratio decreased [Recovered/Resolved]
  - Cough [Recovered/Resolved]
  - Wrong technique in product usage process [Recovered/Resolved]
  - Intentional product use issue [Recovered/Resolved]
